FAERS Safety Report 9551981 (Version 1)
Quarter: 2013Q2

REPORT INFORMATION
  Report Type: Spontaneous
  Country: US (occurrence: None)
  Receive Date: 20130524
  Receipt Date: 20130524
  Transmission Date: 20140414
  Serious: No
  Sender: FDA-Public Use
  Company Number: PHEH2013US0000771

PATIENT
  Age: 60 Year
  Sex: Female

DRUGS (2)
  1. GILENYA (FINGOLIMOD) [Suspect]
     Indication: MULTIPLE SCLEROSIS
     Route: 048
     Dates: start: 201012
  2. AMPYRA (FAMPRIDINE) TABLET, 10MG [Concomitant]

REACTIONS (5)
  - Insomnia [None]
  - Fall [None]
  - Muscle spasms [None]
  - Diarrhoea [None]
  - Dizziness [None]
